FAERS Safety Report 7725088 (Version 3)
Quarter: 2018Q4

REPORT INFORMATION
  Report Type: Spontaneous
  Country: FR (occurrence: FR)
  Receive Date: 20101221
  Receipt Date: 20181012
  Transmission Date: 20190205
  Serious: Yes (Other)
  Sender: FDA-Public Use
  Company Number: FR-PFIZER INC-2010174264

PATIENT
  Age: 65 Year
  Sex: Male

DRUGS (12)
  1. ENDOXAN [Suspect]
     Active Substance: CYCLOPHOSPHAMIDE
     Indication: NEUROENDOCRINE CARCINOMA OF THE SKIN
     Dosage: 1860 MG, SINGLE
     Route: 041
     Dates: start: 20101118, end: 20101118
  2. RAPAMUNE [Suspect]
     Active Substance: SIROLIMUS
     Dosage: 2 MG, 1X/DAY
     Route: 048
  3. DOXORUBICIN HCL [Suspect]
     Active Substance: DOXORUBICIN HYDROCHLORIDE
     Indication: NEUROENDOCRINE CARCINOMA OF THE SKIN
     Dosage: 74.4 MG, SINGLE
     Route: 041
     Dates: start: 20101118, end: 20101118
  4. TAREG [Concomitant]
     Active Substance: VALSARTAN
  5. XATRAL [Concomitant]
     Active Substance: ALFUZOSIN
  6. CELLCEPT [Suspect]
     Active Substance: MYCOPHENOLATE MOFETIL\MYCOPHENOLATE MOFETIL HYDROCHLORIDE
     Dosage: 500 MG, 2X/DAY
     Route: 048
  7. SETRON [Concomitant]
  8. SKENAN [Concomitant]
     Active Substance: MORPHINE SULFATE
  9. MESNA. [Concomitant]
     Active Substance: MESNA
     Indication: NEUROENDOCRINE CARCINOMA OF THE SKIN
  10. ONCOVIN [Suspect]
     Active Substance: VINCRISTINE SULFATE
     Indication: NEUROENDOCRINE CARCINOMA OF THE SKIN
     Dosage: 2 MG, SINGLE
     Route: 041
     Dates: start: 20101118, end: 20101118
  11. SOLU-MEDROL [Concomitant]
     Active Substance: METHYLPREDNISOLONE SODIUM SUCCINATE
  12. MORPHINE [Concomitant]
     Active Substance: MORPHINE

REACTIONS (1)
  - Herpes zoster [Recovered/Resolved]

NARRATIVE: CASE EVENT DATE: 20101123
